FAERS Safety Report 14779175 (Version 2)
Quarter: 2018Q2

REPORT INFORMATION
  Report Type: Spontaneous
  Country: JP (occurrence: JP)
  Receive Date: 20180419
  Receipt Date: 20180620
  Transmission Date: 20180711
  Serious: Yes (Death, Other)
  Sender: FDA-Public Use
  Company Number: JP-PFIZER INC-2018156845

PATIENT
  Age: 6 Year
  Sex: Female
  Weight: 7.9 kg

DRUGS (1)
  1. REVATIO [Suspect]
     Active Substance: SILDENAFIL CITRATE
     Indication: PULMONARY HYPERTENSION
     Dosage: 5 MG, 3X/DAY
     Dates: start: 20121010, end: 20171209

REACTIONS (5)
  - Bradycardia [Not Recovered/Not Resolved]
  - Nasopharyngitis [Unknown]
  - Myocardial ischaemia [Fatal]
  - Product use issue [Unknown]
  - Hypoxia [Not Recovered/Not Resolved]

NARRATIVE: CASE EVENT DATE: 20180402
